FAERS Safety Report 15261177 (Version 1)
Quarter: 2018Q3

REPORT INFORMATION
  Report Type: Spontaneous
  Country: US (occurrence: US)
  Receive Date: 20180719
  Receipt Date: 20180719
  Transmission Date: 20181010
  Serious: Yes (Hospitalization)
  Sender: FDA-Public Use
  Company Number: None

PATIENT
  Age: 5 Year
  Sex: Female
  Weight: 27.1 kg

DRUGS (4)
  1. VINCRISTINE SULFATE. [Suspect]
     Active Substance: VINCRISTINE SULFATE
     Dates: end: 20130416
  2. MERCAPTOPURINE. [Suspect]
     Active Substance: MERCAPTOPURINE
     Dates: end: 20130504
  3. DEXAMETHASONE. [Suspect]
     Active Substance: DEXAMETHASONE
     Dates: end: 20130325
  4. METHOTREXATE. [Suspect]
     Active Substance: METHOTREXATE
     Dates: end: 20130504

REACTIONS (11)
  - Lethargy [None]
  - Hypotension [None]
  - Tachycardia [None]
  - Blood glucose decreased [None]
  - Hepatic function abnormal [None]
  - Alanine aminotransferase increased [None]
  - Gallbladder enlargement [None]
  - Mental status changes [None]
  - Aspartate aminotransferase increased [None]
  - Blood bilirubin increased [None]
  - Ascites [None]

NARRATIVE: CASE EVENT DATE: 20130505
